FAERS Safety Report 7675792-9 (Version None)
Quarter: 2011Q3

REPORT INFORMATION
  Report Type: 
  Country: None (occurrence: None)
  Receive Date: 20110810
  Receipt Date: 20110801
  Transmission Date: 20111222
  Serious: Yes (Hospitalization)
  Sender: FDA-Public Use
  Company Number: US-ASTRAZENECA-2011SE45947

PATIENT
  Age: 51 Year
  Sex: Female

DRUGS (12)
  1. LEXAPRO [Concomitant]
  2. AMITIZA [Concomitant]
  3. COLACE [Concomitant]
  4. SEROQUEL XR [Suspect]
     Indication: DEPRESSION
     Route: 048
     Dates: start: 20100601
  5. ZOFRAN [Concomitant]
  6. ROZEREM [Concomitant]
  7. SEROQUEL XR [Suspect]
     Indication: POST-TRAUMATIC STRESS DISORDER
     Route: 048
     Dates: start: 20100601
  8. PHENERGAN IM [Concomitant]
  9. MIRALAX [Concomitant]
  10. PROTONIX [Concomitant]
  11. KLONOPIN [Concomitant]
  12. AMBIEN CR [Concomitant]

REACTIONS (3)
  - DEHYDRATION [None]
  - IMPAIRED GASTRIC EMPTYING [None]
  - ILEUS PARALYTIC [None]
